FAERS Safety Report 24065188 (Version 3)
Quarter: 2024Q3

REPORT INFORMATION
  Report Type: Spontaneous
  Country: JP (occurrence: JP)
  Receive Date: 20240709
  Receipt Date: 20240726
  Transmission Date: 20241016
  Serious: Yes (Other)
  Sender: CHIESI
  Company Number: JP-CHIESI-2024CHF03989

PATIENT
  Age: 60 Year
  Sex: Female
  Weight: 46.8 kg

DRUGS (2)
  1. FERRIPROX [Suspect]
     Active Substance: DEFERIPRONE
     Indication: Superficial siderosis of central nervous system
     Dosage: 3 DOSAGE FORM, QD
     Route: 048
     Dates: start: 20231221, end: 20240207
  2. FERRIPROX [Suspect]
     Active Substance: DEFERIPRONE
     Indication: Off label use
     Dosage: 3 DOSAGE FORM, QOD
     Route: 048
     Dates: start: 20240208, end: 20240529

REACTIONS (8)
  - Neutropenia [Recovered/Resolved]
  - Product use issue [Recovered/Resolved]
  - Hepatic function abnormal [Recovered/Resolved]
  - Oropharyngeal pain [Recovered/Resolved]
  - Treatment noncompliance [Recovered/Resolved]
  - Off label use [Recovered/Resolved]
  - Intentional product misuse [Recovered/Resolved]
  - Off label use [Recovered/Resolved]

NARRATIVE: CASE EVENT DATE: 20231221
